FAERS Safety Report 18584952 (Version 1)
Quarter: 2020Q4

REPORT INFORMATION
  Report Type: Spontaneous
  Country: GB (occurrence: GB)
  Receive Date: 20201207
  Receipt Date: 20201207
  Transmission Date: 20210114
  Serious: Yes (Other)
  Sender: FDA-Public Use
  Company Number: GB-LUPIN PHARMACEUTICALS INC.-2020-07627

PATIENT
  Age: 17 Year
  Sex: Female
  Weight: 66 kg

DRUGS (19)
  1. GABAPENTIN. [Suspect]
     Active Substance: GABAPENTIN
     Indication: HEADACHE
     Dosage: UNK
     Route: 065
  2. PREGABALIN. [Suspect]
     Active Substance: PREGABALIN
     Indication: HEADACHE
     Dosage: UNK
     Route: 065
  3. METHYSERGIDE [Suspect]
     Active Substance: METHYSERGIDE
     Indication: HEADACHE
     Dosage: UNK
     Route: 065
  4. TOPIRAMAT [Suspect]
     Active Substance: TOPIRAMATE
     Indication: HEADACHE
     Dosage: UNK
     Route: 065
  5. MEMANTINE. [Suspect]
     Active Substance: MEMANTINE
     Indication: HEADACHE
     Dosage: UNK
     Route: 065
  6. PIZOTIFEN [Suspect]
     Active Substance: PIZOTYLINE
     Indication: HEADACHE
     Dosage: UNK
     Route: 065
  7. CITALOPRAM [Suspect]
     Active Substance: CITALOPRAM HYDROBROMIDE
     Indication: HEADACHE
     Dosage: UNK
     Route: 065
  8. DIHYDROERGOTAMINE [Suspect]
     Active Substance: DIHYDROERGOTAMINE
     Indication: HEADACHE
     Dosage: UNK
     Route: 065
  9. SODIUM VALPROATE [Suspect]
     Active Substance: VALPROATE SODIUM
     Indication: HEADACHE
     Dosage: UNK
     Route: 065
  10. VENLAFAXINE [Suspect]
     Active Substance: VENLAFAXINE HYDROCHLORIDE
     Indication: HEADACHE
     Dosage: UNK
     Route: 065
  11. MIDODRINE [Concomitant]
     Active Substance: MIDODRINE
     Indication: POSTURAL ORTHOSTATIC TACHYCARDIA SYNDROME
     Dosage: UNK
     Route: 065
  12. SERTRALINE [Suspect]
     Active Substance: SERTRALINE HYDROCHLORIDE
     Indication: HEADACHE
     Dosage: UNK
     Route: 065
  13. BOTULINUM TOXIN TYPE A [Suspect]
     Active Substance: BOTULINUM TOXIN TYPE A
     Indication: HEADACHE
     Dosage: UNK
     Route: 065
  14. AMITRIPTYLINE [Suspect]
     Active Substance: AMITRIPTYLINE
     Indication: HEADACHE
     Dosage: UNK
     Route: 065
  15. FLUDROCORTISONE [Concomitant]
     Active Substance: FLUDROCORTISONE
     Indication: POSTURAL ORTHOSTATIC TACHYCARDIA SYNDROME
     Dosage: UNK
     Route: 065
  16. DULOXETINE. [Suspect]
     Active Substance: DULOXETINE
     Indication: HEADACHE
     Dosage: UNK
     Route: 065
  17. METOPROLOL. [Suspect]
     Active Substance: METOPROLOL
     Indication: HEADACHE
     Dosage: UNK
     Route: 065
  18. OCTREOTIDE. [Concomitant]
     Active Substance: OCTREOTIDE
     Indication: POSTURAL ORTHOSTATIC TACHYCARDIA SYNDROME
     Dosage: UNK
     Route: 065
  19. OLANZAPINE. [Concomitant]
     Active Substance: OLANZAPINE
     Indication: AFFECTIVE DISORDER
     Dosage: UNK
     Route: 065

REACTIONS (1)
  - Drug ineffective [Unknown]
